FAERS Safety Report 16208693 (Version 1)
Quarter: 2019Q2

REPORT INFORMATION
  Report Type: Spontaneous
  Country: US (occurrence: US)
  Receive Date: 20190417
  Receipt Date: 20190417
  Transmission Date: 20190711
  Serious: Yes (Other)
  Sender: FDA-Public Use
  Company Number: US-AKORN PHARMACEUTICALS-2019AKN00681

PATIENT
  Age: 25 Year
  Sex: Female
  Weight: 63.49 kg

DRUGS (8)
  1. CAMILA [Concomitant]
     Active Substance: NORETHINDRONE
  2. ATIVAN [Concomitant]
     Active Substance: LORAZEPAM
  3. PROPRANOLOL [Concomitant]
     Active Substance: PROPRANOLOL HYDROCHLORIDE
  4. NEURONTIN [Concomitant]
     Active Substance: GABAPENTIN
  5. LEXAPRO [Concomitant]
     Active Substance: ESCITALOPRAM OXALATE
  6. MYORISAN [Suspect]
     Active Substance: ISOTRETINOIN
     Dosage: UNK MG, 1X/DAY
     Dates: start: 20190228, end: 20190318
  7. SPIRONOLACTONE. [Concomitant]
     Active Substance: SPIRONOLACTONE
  8. MYORISAN [Suspect]
     Active Substance: ISOTRETINOIN
     Indication: ACNE
     Dosage: 30 MG, 2X/DAY
     Dates: start: 20181127, end: 20190227

REACTIONS (3)
  - Off label use [Recovered/Resolved]
  - Mood swings [Recovered/Resolved]
  - Aggression [Recovered/Resolved]

NARRATIVE: CASE EVENT DATE: 2019
